FAERS Safety Report 8862470 (Version 1)
Quarter: 2012Q4

REPORT INFORMATION
  Report Type: 
  Country: US (occurrence: US)
  Receive Date: 20121026
  Receipt Date: 20121026
  Transmission Date: 20130627
  Serious: No
  Sender: FDA-Public Use
  Company Number: US-ALLERGAN-1114297US

PATIENT
  Sex: Female

DRUGS (5)
  1. ALPHAGAN P [Suspect]
     Indication: GLAUCOMA
     Dosage: 2 Gtt, tid
     Route: 047
  2. ALPHAGAN P [Suspect]
     Dosage: UNK
  3. ALPHAGAN P [Suspect]
     Dosage: UNK
  4. AZOPT [Concomitant]
     Indication: GLAUCOMA
     Dosage: 2 Gtt, tid
     Route: 047
  5. TRAVATAN Z [Concomitant]
     Indication: GLAUCOMA
     Dosage: 2 Gtt, qd
     Route: 047

REACTIONS (3)
  - Skin discolouration [Not Recovered/Not Resolved]
  - Scleral hyperaemia [Recovering/Resolving]
  - Eye pain [Recovered/Resolved]
